FAERS Safety Report 6317251-1 (Version None)
Quarter: 2009Q3

REPORT INFORMATION
  Report Type: 
  Country: None (occurrence: None)
  Receive Date: 20090819
  Receipt Date: 20090809
  Transmission Date: 20100115
  Serious: No
  Sender: FDA-Public Use
  Company Number: SP00688

PATIENT
  Age: 44 Year
  Sex: Male
  Weight: 104.3273 kg

DRUGS (7)
  1. VISICOL [Suspect]
     Indication: COLONOSCOPY
     Dosage: 48 G QD, ORAL
     Route: 048
  2. MOBIC [Suspect]
     Indication: ANTIINFLAMMATORY THERAPY
  3. RAMIPRIL [Suspect]
     Indication: HYPERTENSION
     Dosage: 10 MG QD, ORAL
     Route: 048
  4. PLAVIX [Concomitant]
  5. ZOCOR [Concomitant]
  6. PROBENECID [Concomitant]
  7. NORVASC [Concomitant]

REACTIONS (10)
  - DIZZINESS [None]
  - LABYRINTHITIS [None]
  - MUSCULOSKELETAL PAIN [None]
  - NEPHROCALCINOSIS [None]
  - NEPHROLITHIASIS [None]
  - NEPHROPATHY [None]
  - OSTEOARTHRITIS [None]
  - ROTATOR CUFF SYNDROME [None]
  - VERTIGO [None]
  - WEIGHT INCREASED [None]
